FAERS Safety Report 7433992-7 (Version None)
Quarter: 2011Q2

REPORT INFORMATION
  Report Type: 
  Country: None (occurrence: None)
  Receive Date: 20110420
  Receipt Date: 20110420
  Transmission Date: 20111010
  Serious: No
  Sender: FDA-Public Use
  Company Number: None

PATIENT
  Sex: Male
  Weight: 61.2356 kg

DRUGS (1)
  1. TORADOL [Suspect]
     Indication: INFLAMMATION
     Dosage: 30 MG X1 IV BOLUS
     Route: 040
     Dates: start: 20110228, end: 20110228

REACTIONS (4)
  - INSOMNIA [None]
  - AGITATION [None]
  - HAEMOGLOBIN DECREASED [None]
  - HALLUCINATION, VISUAL [None]
